FAERS Safety Report 16119119 (Version 1)
Quarter: 2019Q1

REPORT INFORMATION
  Report Type: Spontaneous
  Country: FR (occurrence: FR)
  Receive Date: 20190326
  Receipt Date: 20190326
  Transmission Date: 20190418
  Serious: Yes (Hospitalization)
  Sender: FDA-Public Use
  Company Number: FR-PFIZER INC-2019123967

PATIENT
  Age: 84 Year
  Sex: Female
  Weight: 80 kg

DRUGS (2)
  1. TAZOCILLINE [Suspect]
     Active Substance: PIPERACILLIN SODIUM\TAZOBACTAM SODIUM
     Indication: INFECTION
     Dosage: UNK
     Dates: start: 20190102, end: 20190109
  2. TAVANIC [Suspect]
     Active Substance: LEVOFLOXACIN
     Indication: INFECTION
     Dosage: UNK
     Route: 048
     Dates: start: 20181031, end: 201901

REACTIONS (2)
  - Pancreatitis acute [Recovered/Resolved]
  - Rash [Recovered/Resolved]

NARRATIVE: CASE EVENT DATE: 20190107
